FAERS Safety Report 8873630 (Version 1)
Quarter: 2012Q4

REPORT INFORMATION
  Report Type: 
  Country: US (occurrence: US)
  Receive Date: 20121023
  Receipt Date: 20121023
  Transmission Date: 20130627
  Serious: Yes (Other)
  Sender: FDA-Public Use
  Company Number: US-ASTELLAS-2012US004921

PATIENT
  Age: 79 Year
  Sex: Female

DRUGS (1)
  1. LEXISCAN [Suspect]
     Indication: CARDIAC STRESS TEST
     Dosage: UNK
     Route: 065

REACTIONS (5)
  - Off label use [Unknown]
  - Electrocardiogram abnormal [Recovered/Resolved]
  - Electrocardiogram abnormal [Unknown]
  - Hyperhidrosis [Unknown]
  - Dyspnoea [Unknown]
